FAERS Safety Report 7566382 (Version 2)
Quarter: 2013Q2

REPORT INFORMATION
  Report Type: Spontaneous
  Country: AR (occurrence: None)
  Receive Date: 20100817
  Receipt Date: 20130611
  Transmission Date: 20140414
  Serious: Yes (Death)
  Sender: FDA-Public Use
  Company Number: ENTC2010-0258

PATIENT
  Age: 76 Year
  Sex: Male

DRUGS (3)
  1. STALEVO [Suspect]
  2. EXELON [Suspect]
     Indication: DEMENTIA ALZHEIMER^S TYPE
     Dosage: (5 CM PATCH)
     Route: 062
  3. DIOVAN (VALSARTAN) [Suspect]
     Route: 048

REACTIONS (1)
  - Pneumonia [None]
